FAERS Safety Report 6706269-2 (Version None)
Quarter: 2010Q2

REPORT INFORMATION
  Report Type: 
  Country: None (occurrence: None)
  Receive Date: 20100503
  Receipt Date: 20100426
  Transmission Date: 20101027
  Serious: Yes (Hospitalization)
  Sender: FDA-Public Use
  Company Number: US-SANOFI-AVENTIS-2010SA024764

PATIENT
  Age: 83 Year
  Sex: Male

DRUGS (3)
  1. OPTICLICK [Suspect]
     Indication: TYPE 2 DIABETES MELLITUS
  2. LANTUS [Suspect]
     Indication: TYPE 2 DIABETES MELLITUS
     Dosage: DOSE:65 UNIT(S)
     Route: 058
  3. NOVOLOG [Concomitant]

REACTIONS (6)
  - ABASIA [None]
  - BLOOD POTASSIUM DECREASED [None]
  - CONVULSION [None]
  - HYPERGLYCAEMIA [None]
  - PNEUMONIA [None]
  - PRODUCT QUALITY ISSUE [None]
